FAERS Safety Report 13256018 (Version 2)
Quarter: 2017Q1

REPORT INFORMATION
  Report Type: Spontaneous
  Country: JP (occurrence: JP)
  Receive Date: 20170221
  Receipt Date: 20170329
  Transmission Date: 20170428
  Serious: Yes (Life-Threatening, Disabling)
  Sender: FDA-Public Use
  Company Number: JP-PFIZER INC-2016577865

PATIENT
  Age: 72 Year
  Sex: Male
  Weight: 50 kg

DRUGS (3)
  1. NORMAL SALINE [Concomitant]
     Active Substance: SODIUM CHLORIDE
     Dosage: 260 ML OVER 4 HOURS
     Dates: start: 20161207
  2. LEUCOVORIN. [Concomitant]
     Active Substance: LEUCOVORIN
     Indication: SALVAGE THERAPY
     Dosage: 15 MG, 3X/DAY
     Route: 042
     Dates: start: 20161208, end: 20161209
  3. METHOTREXATE 50MG [Suspect]
     Active Substance: METHOTREXATE
     Indication: BURKITT^S LYMPHOMA
     Dosage: 6000 MG, UNK
     Route: 041
     Dates: start: 20161207, end: 20161207

REACTIONS (6)
  - Drug level increased [Recovered/Resolved]
  - White blood cell count decreased [Not Recovered/Not Resolved]
  - Blood sodium increased [Recovered/Resolved]
  - Blood urea increased [Recovered/Resolved]
  - Blood chloride increased [Recovered/Resolved]
  - Blood creatinine decreased [Not Recovered/Not Resolved]

NARRATIVE: CASE EVENT DATE: 20161208
